FAERS Safety Report 25111707 (Version 1)
Quarter: 2025Q1

REPORT INFORMATION
  Report Type: Spontaneous
  Country: DK (occurrence: DK)
  Receive Date: 20250324
  Receipt Date: 20250324
  Transmission Date: 20250409
  Serious: Yes (Other)
  Sender: ACCORD
  Company Number: DK-MLMSERVICE-20250306-PI438611-00255-1

PATIENT
  Age: 76 Year
  Sex: Male

DRUGS (2)
  1. CAPECITABINE [Suspect]
     Active Substance: CAPECITABINE
     Indication: Squamous cell carcinoma
  2. PACLITAXEL [Suspect]
     Active Substance: PACLITAXEL
     Indication: Squamous cell carcinoma

REACTIONS (2)
  - Neurotoxicity [Unknown]
  - Off label use [Unknown]
